FAERS Safety Report 17636862 (Version 1)
Quarter: 2020Q2

REPORT INFORMATION
  Report Type: Spontaneous
  Country: US (occurrence: US)
  Receive Date: 20200406
  Receipt Date: 20200406
  Transmission Date: 20200713
  Serious: Yes (Other)
  Sender: FDA-Public Use
  Company Number: None

PATIENT
  Age: 21 Year
  Sex: Male
  Weight: 76.5 kg

DRUGS (1)
  1. JIVI [Suspect]
     Active Substance: DAMOCTOCOG ALFA PEGOL
     Indication: FACTOR VIII DEFICIENCY
     Dosage: ?          OTHER FREQUENCY:TWICE A WEEK;?
     Route: 042
     Dates: start: 20200403, end: 20200403

REACTIONS (2)
  - Cold-stimulus headache [None]
  - Dyspnoea [None]

NARRATIVE: CASE EVENT DATE: 20200403
